FAERS Safety Report 5357601-6 (Version None)
Quarter: 2007Q2

REPORT INFORMATION
  Report Type: 
  Country: None (occurrence: None)
  Receive Date: 20070614
  Receipt Date: 20070608
  Transmission Date: 20071010
  Serious: Yes (Hospitalization)
  Sender: FDA-Public Use
  Company Number: US-ELI_LILLY_AND_COMPANY-US200706002195

PATIENT
  Age: 63 Year
  Sex: Male

DRUGS (3)
  1. BYETTA [Suspect]
     Indication: DIABETES MELLITUS NON-INSULIN-DEPENDENT
     Dosage: 5 UG, 2/D
     Route: 058
     Dates: start: 20070508
  2. METFORMIN HCL [Concomitant]
     Dosage: UNK, UNKNOWN
  3. ACTOS [Concomitant]
     Dosage: UNK, UNKNOWN

REACTIONS (3)
  - BLADDER OBSTRUCTION [None]
  - MALAISE [None]
  - POLLAKIURIA [None]
